FAERS Safety Report 7025329-2 (Version None)
Quarter: 2010Q4

REPORT INFORMATION
  Report Type: 
  Country: None (occurrence: None)
  Receive Date: 20101001
  Receipt Date: 20100915
  Transmission Date: 20110411
  Serious: Yes (Other)
  Sender: FDA-Public Use
  Company Number: PHEH2006US15240

PATIENT
  Sex: Female

DRUGS (19)
  1. ZOMETA [Suspect]
     Dosage: UNK
     Dates: start: 20020101
  2. COUMADIN [Concomitant]
  3. TAMOXIFEN CITRATE [Concomitant]
  4. EFFEXOR [Concomitant]
  5. FEMARA [Concomitant]
  6. MICARDIS [Concomitant]
  7. ALLEGRA [Concomitant]
  8. NASONEX [Concomitant]
  9. XELODA [Concomitant]
  10. CLINDAMYCIN [Concomitant]
  11. PEPCID [Concomitant]
  12. PROCRIT                            /00909301/ [Concomitant]
  13. COMPAZINE [Concomitant]
  14. CIPROFLOXACIN [Concomitant]
  15. PROXETINE [Concomitant]
  16. PAXIL [Concomitant]
  17. K-DUR [Concomitant]
  18. XELODA [Concomitant]
  19. TEQUIN [Concomitant]

REACTIONS (34)
  - ABSCESS [None]
  - ANIMAL BITE [None]
  - ANXIETY [None]
  - BONE DENSITY DECREASED [None]
  - BONE DISORDER [None]
  - CHOLELITHIASIS [None]
  - COAGULOPATHY [None]
  - DECREASED INTEREST [None]
  - DENTAL FISTULA [None]
  - DEPRESSION [None]
  - DIZZINESS [None]
  - FEBRILE NEUTROPENIA [None]
  - GENERAL PHYSICAL HEALTH DETERIORATION [None]
  - GINGIVAL BLEEDING [None]
  - GINGIVAL ERYTHEMA [None]
  - GINGIVAL OEDEMA [None]
  - HYPOMAGNESAEMIA [None]
  - LYMPHADENOPATHY MEDIASTINAL [None]
  - MALIGNANT MELANOMA [None]
  - MALIGNANT PLEURAL EFFUSION [None]
  - METASTASES TO BONE [None]
  - METASTASES TO LIVER [None]
  - NASAL SINUS CANCER [None]
  - NEOPLASM MALIGNANT [None]
  - OSTEOARTHRITIS [None]
  - OSTEONECROSIS OF JAW [None]
  - PAIN [None]
  - PERIODONTITIS [None]
  - PULPITIS DENTAL [None]
  - RENAL CYST [None]
  - SINUSITIS [None]
  - SKIN EXFOLIATION [None]
  - SKIN NEOPLASM EXCISION [None]
  - WOUND [None]
